FAERS Safety Report 7658002-8 (Version None)
Quarter: 2011Q3

REPORT INFORMATION
  Report Type: 
  Country: None (occurrence: None)
  Receive Date: 20110805
  Receipt Date: 20090213
  Transmission Date: 20111222
  Serious: Yes (Disabling, Other)
  Sender: FDA-Public Use
  Company Number: US-BAYER-200836437NA

PATIENT
  Age: 65 Year
  Sex: Male
  Weight: 76 kg

DRUGS (33)
  1. MAGNEVIST [Suspect]
     Dosage: 15 ML, UNK
     Dates: start: 20061030, end: 20061030
  2. GADOLINIUM IN UNSPECIFIED DRUG [Suspect]
     Indication: PRODUCT USED FOR UNKNOWN INDICATION
     Dosage: UNK UNK, ONCE
     Dates: start: 20060929, end: 20060929
  3. LISINOPRIL [Concomitant]
     Indication: HYPERTENSION
     Dates: start: 20070101
  4. RENAGEL [Concomitant]
     Indication: BLOOD PHOSPHORUS DECREASED
  5. EPOETIN ALFA [Concomitant]
     Dosage: PRN AFTER DIALYSIS
     Dates: start: 19690101
  6. NORVASC [Concomitant]
     Indication: HYPERTENSION
     Dates: start: 20050101, end: 20060615
  7. PENTOXIFYLLINE [Concomitant]
  8. LEVAQUIN [Concomitant]
  9. MAGNEVIST [Suspect]
  10. LOVENOX [Concomitant]
  11. ZOFRAN [Concomitant]
  12. PENTOXIFYLLINE [Concomitant]
     Indication: PLATELET ADHESIVENESS DECREASED
  13. LISINOPRIL [Concomitant]
  14. CLONIDINE [Concomitant]
  15. VANCOMYCIN [Concomitant]
  16. HYDROCODONE BITARTRATE AND ACETAMINOPHEN [Concomitant]
  17. MAGNEVIST [Suspect]
     Indication: NUCLEAR MAGNETIC RESONANCE IMAGING
     Dosage: 20 ML
     Dates: start: 20061026, end: 20061026
  18. MAGNEVIST [Suspect]
     Dosage: 15 ML
     Dates: start: 20061030, end: 20061030
  19. GADOLINIUM IN UNSPECIFIED DRUG [Suspect]
     Dosage: UNK, ONCE
     Dates: start: 20061004, end: 20061004
  20. SENSIPAR [Concomitant]
     Indication: BLOOD CALCIUM DECREASED
  21. MERREM [Concomitant]
  22. LORAZEPAM [Concomitant]
  23. GADOLINIUM IN UNSPECIFIED DRUG [Suspect]
     Dosage: UNK, ONCE
     Dates: start: 20060930, end: 20060930
  24. GADOLINIUM IN UNSPECIFIED DRUG [Suspect]
     Dosage: UNK, ONCE
     Dates: start: 20061002, end: 20061002
  25. LOPRESSOR [Concomitant]
     Indication: HYPERTENSION
     Dates: start: 20070101
  26. DALTEPARIN SODIUM [Concomitant]
  27. PANTOTHENATE SODIUM [Concomitant]
  28. METOPROLOL TARTRATE [Concomitant]
  29. RELAFEN [Concomitant]
  30. FERROUS SULFATE TAB [Concomitant]
  31. SKELAXIN [Concomitant]
  32. FUROSEMIDE [Concomitant]
  33. VITAMIN TAB [Concomitant]
     Indication: SUPPLEMENTATION THERAPY

REACTIONS (12)
  - NEPHROGENIC SYSTEMIC FIBROSIS [None]
  - SKIN LESION [None]
  - DEPRESSION [None]
  - PRURITUS [None]
  - MUSCULOSKELETAL STIFFNESS [None]
  - JOINT STIFFNESS [None]
  - PAIN [None]
  - INJURY [None]
  - ANXIETY [None]
  - EMOTIONAL DISTRESS [None]
  - SCAR [None]
  - RENAL IMPAIRMENT [None]
